FAERS Safety Report 5237581-4 (Version None)
Quarter: 2007Q1

REPORT INFORMATION
  Report Type: 
  Country: None (occurrence: None)
  Receive Date: 20070213
  Receipt Date: 20070202
  Transmission Date: 20070707
  Serious: Yes (Congenital Anomaly)
  Sender: FDA-Public Use
  Company Number: US-GILEAD-2006-0010571

PATIENT
  Sex: Female
  Weight: 2.75 kg

DRUGS (3)
  1. VIREAD [Suspect]
     Route: 064
     Dates: start: 20051101
  2. VIDEX [Concomitant]
     Route: 064
     Dates: start: 20051101
  3. VIRACEPT [Concomitant]
     Route: 064
     Dates: start: 20051101

REACTIONS (1)
  - CONGENITAL TERATOMA [None]
